APPROVED DRUG PRODUCT: DIASTAT
Active Ingredient: DIAZEPAM
Strength: 10MG/2ML (5MG/ML) **Federal Register determination that product was not discontinued or withdrawn for safety or effectiveness reasons**
Dosage Form/Route: GEL;RECTAL
Application: N020648 | Product #003
Applicant: BAUSCH HEALTH US LLC
Approved: Jul 29, 1997 | RLD: Yes | RS: No | Type: DISCN